FAERS Safety Report 9999679 (Version 1)
Quarter: 2014Q1

REPORT INFORMATION
  Report Type: Spontaneous
  Country: US (occurrence: US)
  Receive Date: 20140312
  Receipt Date: 20140312
  Transmission Date: 20141002
  Serious: Yes (Other)
  Sender: FDA-Public Use
  Company Number: US-TEVA-467907USA

PATIENT
  Age: 80 Year
  Sex: Female

DRUGS (5)
  1. BUDESONIDE [Suspect]
     Indication: CHRONIC OBSTRUCTIVE PULMONARY DISEASE
     Route: 055
  2. BROVANA [Suspect]
     Indication: CHRONIC OBSTRUCTIVE PULMONARY DISEASE
     Route: 055
  3. ALBUTEROL [Concomitant]
  4. SPIRIVA [Concomitant]
  5. ADVAIR [Concomitant]

REACTIONS (2)
  - Abasia [Not Recovered/Not Resolved]
  - Dyspnoea [Not Recovered/Not Resolved]
